FAERS Safety Report 9714499 (Version 1)
Quarter: 2013Q4

REPORT INFORMATION
  Report Type: Spontaneous
  Country: US (occurrence: US)
  Receive Date: 20131126
  Receipt Date: 20131126
  Transmission Date: 20140711
  Serious: No
  Sender: FDA-Public Use
  Company Number: US-BIOGENIDEC-2013BI087096

PATIENT
  Age: 52 Year
  Sex: Female

DRUGS (5)
  1. TECFIDERA [Suspect]
     Indication: MULTIPLE SCLEROSIS
     Route: 048
     Dates: start: 201308
  2. TECFIDERA [Suspect]
     Indication: MULTIPLE SCLEROSIS
     Route: 048
     Dates: start: 201308
  3. ADDERALL XR [Concomitant]
  4. CVS IBUPROFEN [Concomitant]
  5. CVS VITAMIN D3 [Concomitant]

REACTIONS (3)
  - Pain [Unknown]
  - Thirst [Unknown]
  - Oropharyngeal discomfort [Unknown]
